FAERS Safety Report 9743148 (Version 1)
Quarter: 2013Q4

REPORT INFORMATION
  Report Type: Spontaneous
  Country: US (occurrence: US)
  Receive Date: 20131210
  Receipt Date: 20131210
  Transmission Date: 20140711
  Serious: No
  Sender: FDA-Public Use
  Company Number: US-GILEAD-2009-0024322

PATIENT
  Age: 69 Year
  Sex: Female

DRUGS (11)
  1. LETAIRIS [Suspect]
     Indication: PULMONARY ARTERIAL HYPERTENSION
     Route: 048
     Dates: start: 20080121
  2. COUMADIN [Concomitant]
  3. VENTAVIS [Concomitant]
  4. LASIX [Concomitant]
  5. FOSAMAX [Concomitant]
  6. CELEXA [Concomitant]
  7. RANITIDINE [Concomitant]
  8. HYZAAR [Concomitant]
  9. DARVOCET [Concomitant]
  10. MEVACOR [Concomitant]
  11. NEXIUM [Concomitant]

REACTIONS (1)
  - Oedema [Recovering/Resolving]
